FAERS Safety Report 9686404 (Version 1)
Quarter: 2013Q4

REPORT INFORMATION
  Report Type: Spontaneous
  Country: CN (occurrence: None)
  Receive Date: 20131108
  Receipt Date: 20131108
  Transmission Date: 20140711
  Serious: Yes (Other)
  Sender: FDA-Public Use
  Company Number: VAL_02813_2013

PATIENT
  Age: 73 Year
  Sex: Male

DRUGS (3)
  1. LOTENSIN [Suspect]
     Indication: HYPERTENSION
     Dosage: (1 DF, IN THE MORNING ORAL)
     Route: 048
     Dates: start: 20120106, end: 20120115
  2. IRBESARTAN [Concomitant]
  3. NIFEDIPINE [Concomitant]

REACTIONS (3)
  - Product quality issue [None]
  - Drug ineffective [None]
  - Blood pressure inadequately controlled [None]
